FAERS Safety Report 12147356 (Version 1)
Quarter: 2016Q1

REPORT INFORMATION
  Report Type: Report from Study
  Country: ES (occurrence: ES)
  Receive Date: 20160304
  Receipt Date: 20160304
  Transmission Date: 20160526
  Serious: Yes (Hospitalization)
  Sender: FDA-Public Use
  Company Number: ES-BAYER-2016-037313

PATIENT
  Age: 72 Year
  Sex: Female

DRUGS (9)
  1. ASPIRINA 500 MG TABLETS, 10 TABLETS [Suspect]
     Active Substance: ASPIRIN
     Indication: BACK PAIN
     Dosage: 500 MG, TID
     Route: 048
     Dates: start: 20141120, end: 20141130
  2. SIMVASTATIN. [Concomitant]
     Active Substance: SIMVASTATIN
     Indication: DYSLIPIDAEMIA
     Dosage: 20 MG, QD
     Route: 048
     Dates: start: 20120214
  3. IBUPROFEN. [Suspect]
     Active Substance: IBUPROFEN
     Indication: BACK PAIN
     Dosage: 600 MG, BID
     Route: 048
     Dates: start: 20141120, end: 20141130
  4. AMILORID/HCTZ [Concomitant]
     Indication: HYPERTENSION
     Dosage: UNK
     Route: 048
     Dates: start: 20120503
  5. OMEPRAZOL [Concomitant]
     Active Substance: OMEPRAZOLE
     Indication: PROPHYLAXIS AGAINST GASTROINTESTINAL ULCER
     Dosage: 20 MG, QD
     Route: 048
     Dates: start: 20120503
  6. INZITAN [Suspect]
     Active Substance: CYANOCOBALAMIN\DEXAMETHASONE\LIDOCAINE HYDROCHLORIDE\THIAMINE HYDROCHLORIDE
     Indication: BACK PAIN
     Route: 030
     Dates: start: 20141124, end: 20141129
  7. ETORICOXIB [Suspect]
     Active Substance: ETORICOXIB
     Indication: BACK PAIN
     Dosage: 60 MG, QD
     Route: 048
     Dates: start: 20141120, end: 20141130
  8. CITALOPRAM [Concomitant]
     Active Substance: CITALOPRAM HYDROBROMIDE
     Indication: DEPRESSION
     Dosage: 10 MG, QD
     Route: 048
     Dates: start: 20120503
  9. DIAZEPAM. [Concomitant]
     Active Substance: DIAZEPAM
     Indication: ANXIETY
     Dosage: 2.5 MG, BID
     Route: 048
     Dates: start: 20130517

REACTIONS (3)
  - Pancreatitis acute [Recovered/Resolved]
  - Urinary bladder polyp [None]
  - Pleural effusion [None]

NARRATIVE: CASE EVENT DATE: 20141130
